FAERS Safety Report 8227208-1 (Version None)
Quarter: 2012Q1

REPORT INFORMATION
  Report Type: 
  Country: None (occurrence: None)
  Receive Date: 20120322
  Receipt Date: 20120315
  Transmission Date: 20120608
  Serious: Yes (Death, Other)
  Sender: FDA-Public Use
  Company Number: US-BAYER-2011-041531

PATIENT
  Age: 15 Year
  Sex: Female
  Weight: 67 kg

DRUGS (6)
  1. INTAL [Concomitant]
     Dosage: UNK
     Dates: start: 20020710
  2. YASMIN [Suspect]
     Indication: ACNE
     Dosage: UNK
     Dates: start: 20020101, end: 20020714
  3. ALBUTEROL [Concomitant]
     Indication: DYSPNOEA
     Dosage: UNK
     Dates: start: 20020710
  4. PREDNISONE TAB [Concomitant]
     Indication: DYSPNOEA
     Dosage: UNK
     Dates: start: 20020712, end: 20020714
  5. YASMIN [Suspect]
     Indication: MENSTRUATION IRREGULAR
  6. YASMIN [Suspect]
     Indication: OVULATION DISORDER

REACTIONS (7)
  - DYSPNOEA [None]
  - PO2 DECREASED [None]
  - PAIN [None]
  - CONVULSION [None]
  - PULMONARY EMBOLISM [None]
  - BACK PAIN [None]
  - CARDIO-RESPIRATORY ARREST [None]
